FAERS Safety Report 9669561 (Version 3)
Quarter: 2013Q4

REPORT INFORMATION
  Report Type: Spontaneous
  Country: JP (occurrence: JP)
  Receive Date: 20131105
  Receipt Date: 20131118
  Transmission Date: 20140711
  Serious: Yes (Hospitalization)
  Sender: FDA-Public Use
  Company Number: JP-ABBVIE-13P-087-1163581-00

PATIENT
  Age: 11 Month
  Sex: Female
  Weight: 5.2 kg

DRUGS (4)
  1. SEVOFRANE [Suspect]
     Indication: GENERAL ANAESTHESIA
     Route: 055
     Dates: start: 20120328, end: 20120328
  2. FENTANYL [Concomitant]
     Indication: GENERAL ANAESTHESIA
     Route: 042
     Dates: start: 20120328, end: 20120328
  3. MIDAZOLAM [Concomitant]
     Indication: GENERAL ANAESTHESIA
     Route: 042
     Dates: start: 20120328, end: 20120328
  4. ROCURONIUM BROMIDE [Concomitant]
     Indication: GENERAL ANAESTHESIA
     Route: 042
     Dates: start: 20120328, end: 20120328

REACTIONS (1)
  - Hyperthermia malignant [Recovering/Resolving]
